FAERS Safety Report 4975560-2 (Version None)
Quarter: 2006Q1

REPORT INFORMATION
  Report Type: 
  Country: None (occurrence: None)
  Receive Date: 20060223
  Receipt Date: 20060118
  Transmission Date: 20060701
  Serious: No
  Sender: FDA-Public Use
  Company Number: SUSI-2006-00079

PATIENT
  Sex: Male

DRUGS (10)
  1. FOSRENOL [Suspect]
     Indication: HYPERPHOSPHATAEMIA
     Dosage: SEE IMAGE
     Dates: start: 20050209, end: 20050928
  2. FOSRENOL [Suspect]
     Indication: HYPERPHOSPHATAEMIA
     Dosage: SEE IMAGE
     Dates: start: 20050929, end: 20051026
  3. ASPIRIN [Concomitant]
  4. ATROVENT [Concomitant]
  5. LASIX [Concomitant]
  6. NEPHROCAPS (VITAMINS NOS, FOLIC ACID) [Concomitant]
  7. NICODERM [Concomitant]
  8. NITROGLYCERIN [Concomitant]
  9. LISINOPRIL [Concomitant]
  10. TEMAZEPAM [Concomitant]

REACTIONS (1)
  - DENTAL CARIES [None]
